FAERS Safety Report 6361351-7 (Version None)
Quarter: 2009Q3

REPORT INFORMATION
  Report Type: 
  Country: None (occurrence: None)
  Receive Date: 20090918
  Receipt Date: 20090908
  Transmission Date: 20100115
  Serious: Yes (Death)
  Sender: FDA-Public Use
  Company Number: B0592168A

PATIENT
  Age: 52 Year
  Sex: Male

DRUGS (1)
  1. ARIXTRA [Suspect]
     Indication: THROMBOSIS PROPHYLAXIS
     Route: 058
     Dates: start: 20090501, end: 20090819

REACTIONS (10)
  - BLOOD PRESSURE INCREASED [None]
  - BRADYCARDIA [None]
  - COMA [None]
  - HEADACHE [None]
  - HYPOVENTILATION [None]
  - INCORRECT DRUG ADMINISTRATION DURATION [None]
  - INTERNATIONAL NORMALISED RATIO DECREASED [None]
  - MYDRIASIS [None]
  - PLATELET COUNT DECREASED [None]
  - SUBDURAL HAEMATOMA [None]
